FAERS Safety Report 7860097-3 (Version None)
Quarter: 2011Q4

REPORT INFORMATION
  Report Type: 
  Country: None (occurrence: None)
  Receive Date: 20111027
  Receipt Date: 20111024
  Transmission Date: 20120403
  Serious: Yes (Life-Threatening, Hospitalization, Disabling)
  Sender: FDA-Public Use
  Company Number: PL-B.I. PHARMACEUTICALS,INC./RIDGEFIELD-2011-DE-05977DE

PATIENT
  Sex: Female
  Weight: 62.5 kg

DRUGS (13)
  1. TIOPRONIN [Suspect]
     Indication: CHRONIC OBSTRUCTIVE PULMONARY DISEASE
     Dosage: 5 MCG
     Route: 055
     Dates: start: 20110302
  2. BEROTEC [Suspect]
     Indication: CHRONIC OBSTRUCTIVE PULMONARY DISEASE
     Dosage: 100 MCG
     Route: 055
     Dates: start: 20050101
  3. GLIBETIC [Concomitant]
     Indication: TYPE 2 DIABETES MELLITUS
     Dosage: 1 MG
     Route: 048
     Dates: start: 20101201
  4. EUPHYLLIN LONG [Concomitant]
     Indication: CHRONIC OBSTRUCTIVE PULMONARY DISEASE
     Dosage: 200 MG
     Route: 048
     Dates: start: 20060101
  5. CONTIX [Concomitant]
     Indication: PROPHYLAXIS
     Dosage: 40 MG
     Route: 048
     Dates: start: 20100101
  6. ACLOTIN [Concomitant]
     Indication: ANTICOAGULANT THERAPY
     Dosage: 250 MG
     Route: 048
     Dates: start: 20100601
  7. ALFADIOL [Concomitant]
     Indication: OSTEOPOROSIS
     Dosage: 0.25 MCG
     Route: 048
     Dates: start: 20080101
  8. FORMOTEROL FUMARATE [Suspect]
     Indication: CHRONIC OBSTRUCTIVE PULMONARY DISEASE
     Dosage: 18 MCG
     Route: 055
     Dates: start: 20060101
  9. SPIRONOL [Concomitant]
     Indication: HYPERTENSION
     Dosage: 25 MG
     Route: 048
     Dates: start: 20090401
  10. CALPEROS [Concomitant]
     Indication: OSTEOPOROSIS
     Dosage: 1000 MG
     Route: 048
     Dates: start: 20080101
  11. BISOPROMERCK [Concomitant]
     Indication: HYPERTENSION
     Dosage: 2.5 MG
     Route: 048
     Dates: start: 20090401
  12. TIALORID [Concomitant]
     Indication: HYPERTENSION
     Dosage: STRENGTH AND DAILY DOSE: 5MG + 50MG
     Route: 048
     Dates: start: 20090401
  13. PREDNISONE [Concomitant]
     Indication: CHRONIC OBSTRUCTIVE PULMONARY DISEASE
     Dosage: 5 MG
     Route: 048
     Dates: start: 20080101

REACTIONS (2)
  - CEREBROVASCULAR ACCIDENT [None]
  - CHRONIC OBSTRUCTIVE PULMONARY DISEASE [None]
